FAERS Safety Report 14457703 (Version 1)
Quarter: 2018Q1

REPORT INFORMATION
  Report Type: Spontaneous
  Country: US (occurrence: US)
  Receive Date: 20180130
  Receipt Date: 20180130
  Transmission Date: 20180509
  Serious: No
  Sender: FDA-Public Use
  Company Number: US-VERTEX PHARMACEUTICALS-2018-000637

PATIENT
  Sex: Male

DRUGS (4)
  1. TOBI [Concomitant]
     Active Substance: TOBRAMYCIN
     Dosage: 1 AMPULE (300 MG/ML), BID, 28 DAYS ON, 28 DAYS OFF
     Route: 055
  2. CAYSTON [Concomitant]
     Active Substance: AZTREONAM
     Dosage: 75 MG/ML, 28 DAYS ON, 28 DAYS OFF
     Route: 055
  3. PULMOZYME [Concomitant]
     Active Substance: DORNASE ALFA
     Dosage: UNK
  4. ORKAMBI [Suspect]
     Active Substance: IVACAFTOR\LUMACAFTOR
     Indication: CYSTIC FIBROSIS
     Dosage: 200/125 MG, BID
     Route: 048

REACTIONS (1)
  - Influenza [Unknown]
